FAERS Safety Report 11438207 (Version 1)
Quarter: 2015Q3

REPORT INFORMATION
  Report Type: Spontaneous
  Country: FR (occurrence: FR)
  Receive Date: 20150901
  Receipt Date: 20150901
  Transmission Date: 20151125
  Serious: Yes (Hospitalization, Other)
  Sender: FDA-Public Use
  Company Number: FR-ABBVIE-15K-056-1452049-00

PATIENT
  Age: 22 Year
  Sex: Female

DRUGS (3)
  1. COLCHIMAX [Concomitant]
     Active Substance: COLCHICINE\DICYCLOMINE HYDROCHLORIDE
     Indication: BEHCET^S SYNDROME
     Route: 048
     Dates: start: 2009
  2. HUMIRA [Suspect]
     Active Substance: ADALIMUMAB
     Indication: BEHCET^S SYNDROME
     Route: 058
     Dates: start: 2009, end: 20150612
  3. ASPEGIC [Concomitant]
     Active Substance: ASPIRIN DL-LYSINE
     Indication: BEHCET^S SYNDROME
     Route: 048
     Dates: start: 2009

REACTIONS (10)
  - Polyneuropathy [Recovered/Resolved]
  - Demyelination [Unknown]
  - Hypoaesthesia [Unknown]
  - Central nervous system inflammation [Unknown]
  - Off label use [Unknown]
  - Cerebral ischaemia [Unknown]
  - Antinuclear antibody positive [Unknown]
  - Dysaesthesia [Unknown]
  - Lupus-like syndrome [Unknown]
  - Paraesthesia [Unknown]

NARRATIVE: CASE EVENT DATE: 2009
